FAERS Safety Report 25544093 (Version 1)
Quarter: 2025Q3

REPORT INFORMATION
  Report Type: Other
  Country: CN (occurrence: CN)
  Receive Date: 20250711
  Receipt Date: 20250711
  Transmission Date: 20251020
  Serious: Yes (Hospitalization)
  Sender: BIONPHARMA INC.
  Company Number: CN-Bion-015046

PATIENT
  Age: 68 Year
  Sex: Male

DRUGS (20)
  1. IBUPROFEN [Suspect]
     Active Substance: IBUPROFEN
     Indication: Pyrexia
  2. BUDESONIDE [Concomitant]
     Active Substance: BUDESONIDE
     Indication: Chronic obstructive pulmonary disease
  3. GLYCOPYRROLATE [Concomitant]
     Active Substance: GLYCOPYRROLATE
     Indication: Chronic obstructive pulmonary disease
  4. FORMOTEROL [Concomitant]
     Active Substance: FORMOTEROL
     Indication: Chronic obstructive pulmonary disease
  5. AMLODIPINE [Concomitant]
     Active Substance: AMLODIPINE BESYLATE
     Indication: Hypertension
  6. ROSUVASTATIN [Concomitant]
     Active Substance: ROSUVASTATIN
     Indication: Cerebral infarction
  7. BORTEZOMIB [Concomitant]
     Active Substance: BORTEZOMIB
     Indication: Plasma cell myeloma
  8. DEXAMETHASONE [Concomitant]
     Active Substance: DEXAMETHASONE
     Indication: Plasma cell myeloma
  9. CEFOPERAZONE\SULBACTAM [Concomitant]
     Active Substance: CEFOPERAZONE\SULBACTAM
     Indication: Respiratory tract infection
  10. IXAZOMIB [Concomitant]
     Active Substance: IXAZOMIB
     Indication: Plasma cell myeloma
     Dates: start: 20230807
  11. MEROPENEM [Concomitant]
     Active Substance: MEROPENEM
     Indication: Infection
     Dates: start: 202308
  12. TEICOPLANIN [Concomitant]
     Active Substance: TEICOPLANIN
     Indication: Infection
     Dates: start: 202308
  13. ISATUXIMAB [Concomitant]
     Active Substance: ISATUXIMAB
     Indication: Plasma cell myeloma
  14. METHYLCOBALAMIN [Concomitant]
     Active Substance: METHYLCOBALAMIN
     Indication: Symptomatic treatment
     Dates: start: 202308
  15. THIAMINE [Concomitant]
     Active Substance: THIAMINE
     Indication: Symptomatic treatment
     Dates: start: 202308
  16. VANCOMYCIN [Concomitant]
     Active Substance: VANCOMYCIN
     Indication: Clostridium difficile infection
     Route: 048
     Dates: start: 202308
  17. LORATADINE [Concomitant]
     Active Substance: LORATADINE
     Indication: Symptomatic treatment
  18. TIGECYCLINE [Concomitant]
     Active Substance: TIGECYCLINE
     Indication: Infection
  19. IBUPROFEN [Suspect]
     Active Substance: IBUPROFEN
     Indication: Pyrexia
     Route: 048
     Dates: start: 202308
  20. TEICOPLANIN [Concomitant]
     Active Substance: TEICOPLANIN
     Indication: Clostridium difficile infection
     Dates: start: 202308

REACTIONS (3)
  - Dermatitis allergic [Unknown]
  - Rash [Unknown]
  - Drug ineffective [Not Recovered/Not Resolved]
